FAERS Safety Report 12898340 (Version 1)
Quarter: 2016Q4

REPORT INFORMATION
  Report Type: Report from Study
  Country: None (occurrence: FI)
  Receive Date: 20161031
  Receipt Date: 20161031
  Transmission Date: 20170207
  Serious: Yes (Hospitalization)
  Sender: FDA-Public Use
  Company Number: FI-ABBVIE-16P-055-1764561-00

PATIENT
  Age: 66 Year
  Sex: Female

DRUGS (21)
  1. EXELON [Concomitant]
     Active Substance: RIVASTIGMINE TARTRATE
     Indication: MEMORY IMPAIRMENT
  2. LYRICA [Concomitant]
     Active Substance: PREGABALIN
     Indication: NEURALGIA
  3. EMGESAN [Concomitant]
     Indication: MAGNESIUM DEFICIENCY
  4. NUTRIDRINK [Concomitant]
     Indication: NUTRITIONAL SUPPLEMENTATION
  5. CALCICHEW D3 FORTE [Concomitant]
     Active Substance: CALCIUM\CHOLECALCIFEROL
     Indication: PRODUCT USED FOR UNKNOWN INDICATION
     Dosage: FORM STRENGTH/UNIT DOSE: 500MG/10UG
     Route: 065
  6. RIVATRIL [Concomitant]
     Active Substance: CLONAZEPAM
     Indication: POOR QUALITY SLEEP
     Route: 065
  7. PRECOSA [Concomitant]
     Indication: PRODUCT USED FOR UNKNOWN INDICATION
     Dates: end: 20161026
  8. COHEMIN [Concomitant]
     Indication: VITAMIN SUPPLEMENTATION
     Dates: start: 20160802
  9. PENOMAX [Concomitant]
     Active Substance: AMDINOCILLIN PIVOXIL HYDROCHLORIDE
     Indication: PROPHYLAXIS URINARY TRACT INFECTION
  10. DIAPAM [Concomitant]
     Active Substance: DIAZEPAM
     Indication: PRODUCT USED FOR UNKNOWN INDICATION
     Dosage: 1-2 TIMES A DAY AS REQUIRED
  11. PEGORION [Concomitant]
     Indication: CONSTIPATION
     Dosage: AS REQUIRED
  12. DUODOPA [Suspect]
     Active Substance: CARBIDOPA\LEVODOPA
     Indication: PARKINSON^S DISEASE
     Dosage: MD 10.0, CD 4.0, ED 2.0. 16H TREATMENT.
     Route: 050
     Dates: start: 200911
  13. DUODOPA [Suspect]
     Active Substance: CARBIDOPA\LEVODOPA
     Route: 050
  14. SINEMET [Concomitant]
     Active Substance: CARBIDOPA\LEVODOPA
     Indication: PRODUCT USED FOR UNKNOWN INDICATION
     Dosage: FORM STRENGTH: 50/200; ?1.5 TABLETS AGAINST THE NIGHT
  15. MIRTAZAPIN [Concomitant]
     Active Substance: MIRTAZAPINE
     Indication: MOOD ALTERED
     Dosage: IN THE EVENINGS
  16. EMGESAN [Concomitant]
     Indication: PROPHYLAXIS
  17. NORSPAN [Concomitant]
     Active Substance: BUPRENORPHINE
     Indication: PAIN
  18. KETIPINOR [Concomitant]
     Active Substance: QUETIAPINE FUMARATE
     Indication: SEDATIVE THERAPY
     Dosage: IN THE EVENINGS
  19. MIRTAZAPIN [Concomitant]
     Active Substance: MIRTAZAPINE
     Indication: POOR QUALITY SLEEP
  20. PANADOL PORE [Concomitant]
     Indication: PAIN
     Dosage: NOT MORE THAN 6 TABLETS A DAY; AS REQUIRED
  21. LEVOLAC [Concomitant]
     Active Substance: LACTULOSE
     Indication: CONSTIPATION
     Dosage: IN THE MORNINGS

REACTIONS (6)
  - Wrong device used [Unknown]
  - Stoma site inflammation [Not Recovered/Not Resolved]
  - Gastrointestinal stoma complication [Unknown]
  - General physical health deterioration [Not Recovered/Not Resolved]
  - Speech disorder [Unknown]
  - Device issue [Unknown]

NARRATIVE: CASE EVENT DATE: 20160808
